FAERS Safety Report 21109695 (Version 1)
Quarter: 2022Q3

REPORT INFORMATION
  Report Type: Spontaneous
  Country: IT (occurrence: IT)
  Receive Date: 20220721
  Receipt Date: 20220721
  Transmission Date: 20221027
  Serious: Yes (Life-Threatening, Hospitalization, Other)
  Sender: FDA-Public Use
  Company Number: IT-MLMSERVICE-20220705-3655729-1

PATIENT
  Age: 90 Year
  Sex: Female

DRUGS (1)
  1. LINEZOLID [Suspect]
     Active Substance: LINEZOLID
     Indication: Antibiotic therapy
     Dosage: 6 DOSAGE FORM (TOTAL)
     Route: 065

REACTIONS (2)
  - Hallucination [Recovering/Resolving]
  - Lactic acidosis [Recovering/Resolving]
